FAERS Safety Report 5559452-6 (Version None)
Quarter: 2007Q4

REPORT INFORMATION
  Report Type: 
  Country: None (occurrence: None)
  Receive Date: 20071214
  Receipt Date: 20071001
  Transmission Date: 20080405
  Serious: No
  Sender: FDA-Public Use
  Company Number: US-ABBOTT-07P-163-0419307-00

PATIENT
  Sex: Female
  Weight: 90.8 kg

DRUGS (2)
  1. HUMIRA [Suspect]
     Indication: PSORIATIC ARTHROPATHY
     Route: 058
     Dates: start: 20070101
  2. THOMAPYRIN N [Concomitant]
     Indication: MIGRAINE
     Route: 048

REACTIONS (3)
  - ARTHRALGIA [None]
  - HEADACHE [None]
  - PSORIASIS [None]
